FAERS Safety Report 5441796-X (Version None)
Quarter: 2007Q3

REPORT INFORMATION
  Report Type: 
  Country: None (occurrence: None)
  Receive Date: 20070830
  Receipt Date: 20070830
  Transmission Date: 20080115
  Serious: No
  Sender: FDA-Public Use
  Company Number: None

PATIENT
  Age: 26 Year
  Sex: Female
  Weight: 54 kg

DRUGS (1)
  1. LINEZOLID [Suspect]
     Indication: ENTEROCOCCAL INFECTION
     Dosage: 340 MG  EVERY 12 HOURS  IV
     Route: 042
     Dates: start: 20060728, end: 20060731

REACTIONS (3)
  - MUSCLE SPASTICITY [None]
  - PAIN IN EXTREMITY [None]
  - RASH MACULO-PAPULAR [None]
